FAERS Safety Report 6059491-5 (Version None)
Quarter: 2009Q1

REPORT INFORMATION
  Report Type: 
  Country: None (occurrence: None)
  Receive Date: 20090127
  Receipt Date: 20090127
  Transmission Date: 20090719
  Serious: No
  Sender: FDA-Public Use
  Company Number: None

PATIENT
  Age: 24 Year
  Sex: Male
  Weight: 103.42 kg

DRUGS (3)
  1. QUETIAPINE FUMARATE [Suspect]
     Indication: NIGHTMARE
     Dosage: 50-100 MG AT BEDTIME PO
     Route: 048
     Dates: start: 20081119, end: 20090109
  2. QUETIAPINE FUMARATE [Suspect]
     Indication: POST-TRAUMATIC STRESS DISORDER
     Dosage: 50-100 MG AT BEDTIME PO
     Route: 048
     Dates: start: 20081119, end: 20090109
  3. QUETIAPINE FUMARATE [Suspect]
     Indication: SLEEP DISORDER
     Dosage: 50-100 MG AT BEDTIME PO
     Route: 048
     Dates: start: 20081119, end: 20090109

REACTIONS (2)
  - SEDATION [None]
  - URINARY INCONTINENCE [None]
